FAERS Safety Report 9410816 (Version 1)
Quarter: 2013Q3

REPORT INFORMATION
  Report Type: Spontaneous
  Country: GB (occurrence: GB)
  Receive Date: 20130719
  Receipt Date: 20130719
  Transmission Date: 20140515
  Serious: Yes (Other)
  Sender: FDA-Public Use
  Company Number: GB-PFIZER INC-9949861

PATIENT
  Age: 67 Year
  Sex: Male

DRUGS (4)
  1. VIAGRA [Suspect]
     Indication: ERECTILE DYSFUNCTION
     Dosage: UNK
     Route: 048
     Dates: start: 19981103
  2. XALATAN [Suspect]
     Route: 047
  3. TEOPTIC [Concomitant]
     Route: 047
  4. TRUSOPT [Concomitant]
     Route: 047

REACTIONS (1)
  - Retinal vein thrombosis [Not Recovered/Not Resolved]
